FAERS Safety Report 25338346 (Version 2)
Quarter: 2025Q3

REPORT INFORMATION
  Report Type: Spontaneous
  Country: US (occurrence: US)
  Receive Date: 20250520
  Receipt Date: 20250714
  Transmission Date: 20251020
  Serious: No
  Sender: SANOFI AVENTIS
  Company Number: US-SA-2025SA143524

PATIENT
  Age: 89 Year
  Sex: Female
  Weight: 70.91 kg

DRUGS (4)
  1. KEVZARA [Suspect]
     Active Substance: SARILUMAB
     Indication: Rheumatoid arthritis
     Dosage: 200 MG, QOW
     Route: 058
     Dates: start: 20250325
  2. CLARITHROMYCIN [Concomitant]
     Active Substance: CLARITHROMYCIN
  3. RINVOQ [Concomitant]
     Active Substance: UPADACITINIB
  4. TETRACYCLINE [Concomitant]
     Active Substance: TETRACYCLINE

REACTIONS (2)
  - Injection site bruising [Not Recovered/Not Resolved]
  - Injection site pain [Not Recovered/Not Resolved]

NARRATIVE: CASE EVENT DATE: 20250101
